FAERS Safety Report 11904856 (Version 1)
Quarter: 2016Q1

REPORT INFORMATION
  Report Type: Spontaneous
  Country: US (occurrence: US)
  Receive Date: 20160108
  Receipt Date: 20160108
  Transmission Date: 20160526
  Serious: No
  Sender: FDA-Public Use
  Company Number: US-ROCHE-1554564

PATIENT
  Age: 52 Year
  Sex: Male

DRUGS (7)
  1. RITUXAN [Suspect]
     Active Substance: RITUXIMAB
     Indication: CHRONIC LYMPHOCYTIC LEUKAEMIA
     Route: 042
     Dates: start: 20140101, end: 20140724
  2. IMBRUVICA [Suspect]
     Active Substance: IBRUTINIB
     Dosage: 3 TABS
     Route: 048
     Dates: start: 201411
  3. IMBRUVICA [Suspect]
     Active Substance: IBRUTINIB
     Indication: CHRONIC LYMPHOCYTIC LEUKAEMIA
     Route: 048
     Dates: start: 20140101
  4. IMBRUVICA [Suspect]
     Active Substance: IBRUTINIB
     Dosage: 3 TABS
     Route: 048
     Dates: start: 20140121, end: 20140724
  5. IMBRUVICA [Suspect]
     Active Substance: IBRUTINIB
     Dosage: 4 TABS
     Route: 048
     Dates: start: 20140724
  6. IMBRUVICA [Suspect]
     Active Substance: IBRUTINIB
     Route: 048
  7. RITUXAN [Suspect]
     Active Substance: RITUXIMAB
     Route: 042
     Dates: start: 20140121, end: 20140724

REACTIONS (6)
  - Neuropathy peripheral [Recovering/Resolving]
  - Memory impairment [Recovering/Resolving]
  - Fatigue [Recovering/Resolving]
  - Skin fissures [Recovering/Resolving]
  - Diarrhoea [Recovered/Resolved]
  - Dry skin [Recovering/Resolving]

NARRATIVE: CASE EVENT DATE: 20140101
